FAERS Safety Report 6352736-3 (Version None)
Quarter: 2009Q3

REPORT INFORMATION
  Report Type: 
  Country: None (occurrence: None)
  Receive Date: 20090912
  Receipt Date: 20090622
  Transmission Date: 20100115
  Serious: No
  Sender: FDA-Public Use
  Company Number: US-ABBOTT-08P-163-0444115-00

PATIENT
  Sex: Male
  Weight: 69.462 kg

DRUGS (14)
  1. HUMIRA [Suspect]
     Indication: RHEUMATOID ARTHRITIS
     Route: 058
  2. CARVEDILOL [Concomitant]
     Indication: CARDIAC FAILURE CONGESTIVE
  3. ASPIRIN [Concomitant]
     Indication: CARDIAC DISORDER
  4. LISINOPRIL [Concomitant]
     Indication: BLOOD PRESSURE MANAGEMENT
  5. SIMVASTATIN [Concomitant]
     Indication: BLOOD CHOLESTEROL ABNORMAL
  6. PREDNISONE [Concomitant]
     Indication: RHEUMATOID ARTHRITIS
  7. OMEPRAZOLE [Concomitant]
     Indication: DYSPEPSIA
  8. CALCIUM [Concomitant]
     Indication: MINERAL SUPPLEMENTATION
  9. SPIRONOLACT [Concomitant]
     Indication: DRUG USE FOR UNKNOWN INDICATION
  10. FUROSEMIDE [Concomitant]
     Indication: CARDIAC FAILURE CONGESTIVE
  11. NITROGLYCERIN [Concomitant]
     Indication: CHEST PAIN
     Route: 048
  12. SENOKOT [Concomitant]
     Indication: CONSTIPATION PROPHYLAXIS
  13. FENTANYL [Concomitant]
     Indication: ARTHRALGIA
  14. OXYCODONE [Concomitant]
     Indication: ARTHRALGIA

REACTIONS (2)
  - INCORRECT DOSE ADMINISTERED [None]
  - INJECTION SITE EXTRAVASATION [None]
